FAERS Safety Report 11871739 (Version 1)
Quarter: 2015Q4

REPORT INFORMATION
  Report Type: Spontaneous
  Country: JP (occurrence: JP)
  Receive Date: 20151228
  Receipt Date: 20151228
  Transmission Date: 20160305
  Serious: Yes (Other)
  Sender: FDA-Public Use
  Company Number: JP-SA-2015SA218076

PATIENT
  Age: 75 Year
  Sex: Male

DRUGS (2)
  1. MYSLEE [Suspect]
     Active Substance: ZOLPIDEM TARTRATE
     Indication: OVERDOSE
     Route: 048
  2. MYSLEE [Suspect]
     Active Substance: ZOLPIDEM TARTRATE
     Indication: OVERDOSE
     Route: 048

REACTIONS (2)
  - Intentional overdose [Unknown]
  - Pancreatic disorder [Unknown]
